FAERS Safety Report 8356003-8 (Version None)
Quarter: 2012Q2

REPORT INFORMATION
  Report Type: 
  Country: None (occurrence: None)
  Receive Date: 20120511
  Receipt Date: 20120511
  Transmission Date: 20120825
  Serious: Yes (Disabling, Other)
  Sender: FDA-Public Use
  Company Number: None

PATIENT
  Sex: Female
  Weight: 50.8029 kg

DRUGS (2)
  1. TAGAMET [Suspect]
     Indication: GASTROOESOPHAGEAL REFLUX DISEASE
     Dosage: 200 MG EVERY 12 HOURS PO
     Route: 048
     Dates: start: 20120417, end: 20120430
  2. TAGAMET [Suspect]
     Indication: DYSPEPSIA
     Dosage: 200 MG EVERY 12 HOURS PO
     Route: 048
     Dates: start: 20120417, end: 20120430

REACTIONS (7)
  - COMMUNICATION DISORDER [None]
  - TINNITUS [None]
  - CONFUSIONAL STATE [None]
  - TOXICITY TO VARIOUS AGENTS [None]
  - COGNITIVE DISORDER [None]
  - THINKING ABNORMAL [None]
  - IMPAIRED WORK ABILITY [None]
